FAERS Safety Report 17064299 (Version 5)
Quarter: 2020Q1

REPORT INFORMATION
  Report Type: Spontaneous
  Country: US (occurrence: US)
  Receive Date: 20191122
  Receipt Date: 20200330
  Transmission Date: 20200409
  Serious: Yes (Hospitalization)
  Sender: FDA-Public Use
  Company Number: US-PFIZER INC-2019500872

PATIENT
  Age: 80 Year
  Sex: Female

DRUGS (1)
  1. IBRANCE [Suspect]
     Active Substance: PALBOCICLIB
     Indication: BREAST CANCER FEMALE
     Dosage: 100 MG, CYCLIC (DAILY FOR 21 DAYS ON AND 7 DAYS OFF/ ONCE A DAY)
     Route: 048
     Dates: start: 201910, end: 20200304

REACTIONS (12)
  - Neoplasm progression [Unknown]
  - Headache [Unknown]
  - Musculoskeletal chest pain [Unknown]
  - Epistaxis [Unknown]
  - Pruritus [Unknown]
  - Alopecia [Unknown]
  - Fatigue [Unknown]
  - Upper-airway cough syndrome [Unknown]
  - Nasal congestion [Unknown]
  - Tachycardia [Unknown]
  - Hordeolum [Unknown]
  - Burning sensation [Unknown]

NARRATIVE: CASE EVENT DATE: 201911
